FAERS Safety Report 17543921 (Version 4)
Quarter: 2023Q2

REPORT INFORMATION
  Report Type: Spontaneous
  Country: US (occurrence: None)
  Receive Date: 20200316
  Receipt Date: 20230512
  Transmission Date: 20230721
  Serious: Yes (Life-Threatening, Hospitalization, Other)
  Sender: FDA-Public Use
  Company Number: US-HIKMA PHARMACEUTICALS-US-H14001-20-01256

PATIENT
  Age: 11 Year
  Sex: Male
  Weight: 52.6 kg

DRUGS (8)
  1. METHOTREXATE [Suspect]
     Active Substance: METHOTREXATE
     Indication: Acute lymphocytic leukaemia
     Route: 037
     Dates: start: 20190813
  2. CYTARABINE [Suspect]
     Active Substance: CYTARABINE
     Indication: Acute lymphocytic leukaemia
     Route: 042
     Dates: start: 20190813
  3. MERCAPTOPURINE [Suspect]
     Active Substance: MERCAPTOPURINE
     Indication: Acute lymphocytic leukaemia
     Dosage: UNKNOWN
     Route: 048
  4. VANCOMYCIN [Suspect]
     Active Substance: VANCOMYCIN
     Indication: Product used for unknown indication
     Route: 042
     Dates: start: 20190909, end: 20190910
  5. RUXOLITINIB [Suspect]
     Active Substance: RUXOLITINIB
     Indication: Acute lymphocytic leukaemia
     Route: 048
     Dates: start: 20190813
  6. VINCRISTINE [Suspect]
     Active Substance: VINCRISTINE
     Indication: Acute lymphocytic leukaemia
     Route: 042
     Dates: start: 20190827
  7. PEGASPARGASE [Suspect]
     Active Substance: PEGASPARGASE
     Indication: Acute lymphocytic leukaemia
     Dosage: 2500
     Route: 042
     Dates: start: 20190827
  8. RANITIDINE [Concomitant]
     Active Substance: RANITIDINE
     Indication: Product used for unknown indication
     Dosage: UNKNOWN
     Route: 065

REACTIONS (11)
  - Febrile neutropenia [Recovered/Resolved]
  - Nausea [Unknown]
  - Vomiting [Unknown]
  - Decreased appetite [Unknown]
  - Somnolence [Recovering/Resolving]
  - Tachycardia [Recovering/Resolving]
  - Pyrexia [Recovered/Resolved]
  - Vancomycin infusion reaction [Recovered/Resolved]
  - Pancytopenia [Recovered/Resolved]
  - Platelet count decreased [Recovered/Resolved]
  - Neutrophil count decreased [Recovered/Resolved]

NARRATIVE: CASE EVENT DATE: 20190817
